FAERS Safety Report 5620792-3 (Version None)
Quarter: 2008Q1

REPORT INFORMATION
  Report Type: 
  Country: None (occurrence: None)
  Receive Date: 20080208
  Receipt Date: 20080128
  Transmission Date: 20080703
  Serious: Yes (Hospitalization, Other)
  Sender: FDA-Public Use
  Company Number: JP-PFIZER INC-2008006921

PATIENT
  Sex: Male
  Weight: 68 kg

DRUGS (9)
  1. GABAPEN [Suspect]
     Indication: EPILEPSY
     Route: 048
  2. ALEVIATIN [Concomitant]
     Indication: EPILEPSY
  3. PANSPORIN [Concomitant]
     Route: 042
     Dates: start: 20071230, end: 20080102
  4. PENTCILLIN [Concomitant]
     Route: 042
     Dates: start: 20080103, end: 20080107
  5. PANTOL [Concomitant]
     Route: 042
     Dates: start: 20080103, end: 20080106
  6. KN SOL. 3B [Concomitant]
     Route: 042
     Dates: start: 20071219, end: 20080102
  7. POTACOL-R [Concomitant]
     Route: 042
     Dates: start: 20071229, end: 20080102
  8. SOLDEM 1 [Concomitant]
     Route: 042
     Dates: start: 20071230, end: 20080109
  9. PENTAZOCINE LACTATE [Concomitant]
     Route: 030
     Dates: start: 20071231

REACTIONS (4)
  - APPENDICITIS [None]
  - BLOOD POTASSIUM INCREASED [None]
  - PANCREATITIS ACUTE [None]
  - PERITONITIS [None]
